FAERS Safety Report 9902894 (Version 1)
Quarter: 2014Q1

REPORT INFORMATION
  Report Type: Report from Study
  Country: NL (occurrence: NL)
  Receive Date: 20140217
  Receipt Date: 20140217
  Transmission Date: 20141002
  Serious: Yes (Death)
  Sender: FDA-Public Use
  Company Number: PHHY2014NL018167

PATIENT
  Age: 59 Year
  Sex: 0

DRUGS (2)
  1. SANDOSTATIN LAR [Suspect]
     Indication: MACULAR OEDEMA
     Dosage: 20 MG + 2ML SOLVENT ONCE EVERY 4 WEEKS
     Dates: start: 20120319
  2. SANDOSTATIN LAR [Suspect]
     Indication: OFF LABEL USE

REACTIONS (1)
  - Death [Fatal]
